FAERS Safety Report 17889483 (Version 3)
Quarter: 2020Q4

REPORT INFORMATION
  Report Type: Spontaneous
  Country: US (occurrence: US)
  Receive Date: 20200612
  Receipt Date: 20201028
  Transmission Date: 20210113
  Serious: Yes (Death, Other)
  Sender: FDA-Public Use
  Company Number: US-PFIZER INC-2020228031

PATIENT
  Age: 73 Year
  Sex: Female
  Weight: 43.09 kg

DRUGS (1)
  1. XELJANZ XR [Suspect]
     Active Substance: TOFACITINIB CITRATE
     Indication: MOBILITY DECREASED
     Dosage: 11 MG, UNK

REACTIONS (8)
  - Upper limb fracture [Unknown]
  - Product use in unapproved indication [Unknown]
  - Death [Fatal]
  - Fall [Unknown]
  - Off label use [Unknown]
  - Parkinson^s disease [Unknown]
  - Rheumatoid arthritis [Unknown]
  - Memory impairment [Unknown]

NARRATIVE: CASE EVENT DATE: 20201022
